FAERS Safety Report 8850397 (Version 1)
Quarter: 2012Q4

REPORT INFORMATION
  Report Type: 
  Country: US (occurrence: US)
  Receive Date: 20121019
  Receipt Date: 20121019
  Transmission Date: 20130627
  Serious: Yes (Other)
  Sender: FDA-Public Use
  Company Number: US-FRI-1000039388

PATIENT
  Sex: Female
  Weight: 59 kg

DRUGS (4)
  1. VIIBRYD [Suspect]
     Indication: DEPRESSION
     Dosage: 10 mg
     Dates: start: 201201, end: 201201
  2. PRISTIQ [Suspect]
     Indication: DEPRESSION
     Dosage: 50 mg
     Route: 048
     Dates: start: 201108
  3. PREVACID [Concomitant]
     Indication: GASTROOESOPHAGEAL REFLUX DISEASE
     Dosage: 60 mg
  4. BENTYL [Concomitant]
     Indication: GASTROOESOPHAGEAL REFLUX DISEASE
     Dosage: 40 mg

REACTIONS (16)
  - Suicidal ideation [Recovered/Resolved]
  - Depression [Recovered/Resolved]
  - Nausea [Recovered/Resolved]
  - Diarrhoea [Recovered/Resolved]
  - Dizziness [Recovered/Resolved]
  - Paraesthesia [Recovered/Resolved]
  - Irritability [Recovered/Resolved]
  - Confusional state [Recovered/Resolved]
  - Emotional disorder [Recovered/Resolved]
  - Crying [Recovered/Resolved]
  - Activities of daily living impaired [Recovered/Resolved]
  - Unevaluable event [Recovered/Resolved]
  - Unevaluable event [Recovered/Resolved]
  - Unevaluable event [Recovered/Resolved]
  - Malaise [Recovered/Resolved]
  - Drug ineffective [Recovered/Resolved]
